FAERS Safety Report 23942493 (Version 2)
Quarter: 2024Q2

REPORT INFORMATION
  Report Type: Spontaneous
  Country: US (occurrence: US)
  Receive Date: 20240605
  Receipt Date: 20240619
  Transmission Date: 20240716
  Serious: Yes (Hospitalization)
  Sender: FDA-Public Use
  Company Number: US-TEVA-VS-3204720

PATIENT
  Age: 25 Year
  Sex: Female

DRUGS (1)
  1. FINGOLIMOD [Suspect]
     Active Substance: FINGOLIMOD
     Indication: Multiple sclerosis
     Route: 065

REACTIONS (3)
  - Meningitis cryptococcal [Recovering/Resolving]
  - Intracranial pressure increased [Recovering/Resolving]
  - Immune reconstitution inflammatory syndrome [Recovering/Resolving]
